FAERS Safety Report 8213196-0 (Version None)
Quarter: 2012Q1

REPORT INFORMATION
  Report Type: 
  Country: None (occurrence: None)
  Receive Date: 20120315
  Receipt Date: 20120307
  Transmission Date: 20120608
  Serious: Yes (Other)
  Sender: FDA-Public Use
  Company Number: US-ABBOTT-12P-163-0912870-00

PATIENT
  Sex: Male

DRUGS (5)
  1. HUMIRA [Suspect]
     Route: 058
     Dates: start: 20120101
  2. REMICADE [Suspect]
     Indication: ANKYLOSING SPONDYLITIS
     Dosage: NOT REPORTED
     Dates: start: 20100101, end: 20110101
  3. HUMIRA [Suspect]
     Indication: ANKYLOSING SPONDYLITIS
     Route: 058
     Dates: start: 20080101, end: 20090101
  4. HUMIRA [Suspect]
     Indication: ANKYLOSING SPONDYLITIS
     Route: 058
     Dates: start: 20120101
  5. SIMPONI [Suspect]
     Indication: ANKYLOSING SPONDYLITIS
     Dosage: NOT REPORTED
     Dates: start: 20090101, end: 20100101

REACTIONS (6)
  - PAIN IN EXTREMITY [None]
  - INJECTION SITE PAIN [None]
  - DRUG INEFFECTIVE [None]
  - ADVERSE DRUG REACTION [None]
  - CHONDROPATHY [None]
  - ARTHRALGIA [None]
